FAERS Safety Report 21796806 (Version 1)
Quarter: 2022Q4

REPORT INFORMATION
  Report Type: Spontaneous
  Country: BE (occurrence: BE)
  Receive Date: 20221230
  Receipt Date: 20221230
  Transmission Date: 20230112
  Serious: Yes (Other)
  Sender: FDA-Public Use
  Company Number: BE-SUN PHARMACEUTICAL INDUSTRIES LTD-2020R1-248992

PATIENT
  Age: 17 Year
  Sex: Male

DRUGS (2)
  1. METHOTREXATE [Interacting]
     Active Substance: METHOTREXATE
     Indication: Non-Hodgkin^s lymphoma
     Dosage: 12 MILLIGRAM
     Route: 037
  2. VORICONAZOLE [Interacting]
     Active Substance: VORICONAZOLE
     Indication: Prophylaxis
     Dosage: UNK
     Route: 065

REACTIONS (2)
  - Drug interaction [Unknown]
  - Photosensitivity reaction [Unknown]
